FAERS Safety Report 20963665 (Version 1)
Quarter: 2022Q2

REPORT INFORMATION
  Report Type: Spontaneous
  Country: US (occurrence: None)
  Receive Date: 20220615
  Receipt Date: 20220615
  Transmission Date: 20220721
  Serious: Yes (Hospitalization)
  Sender: FDA-Public Use
  Company Number: None

PATIENT
  Sex: Female

DRUGS (13)
  1. DIMETHYL FUMARATE [Suspect]
     Active Substance: DIMETHYL FUMARATE
     Indication: Multiple sclerosis
     Dosage: TAKE 1 CAPSULE BY MOUTH TWICE DAILY. SWALLOW CAPSULE WHOLE, DO NOT CRUSH OR CHEW
     Route: 048
     Dates: start: 20201103
  2. BUPROPION TAB [Concomitant]
  3. FOLIC ACID TAB [Concomitant]
  4. GABAPENTIN [Concomitant]
     Active Substance: GABAPENTIN
  5. MAGNESIUM TAB [Concomitant]
  6. MIRALAX POW NF [Concomitant]
  7. OMEPRAZOLE [Concomitant]
     Active Substance: OMEPRAZOLE
  8. TOVIAZ TAB [Concomitant]
  9. TUMS CHW [Concomitant]
  10. TYLENOL TAB [Concomitant]
  11. VITAMIN B12 TAB [Concomitant]
  12. VITAMIN C TAB [Concomitant]
  13. VITAMIN D3 CAP [Concomitant]

REACTIONS (4)
  - Depression [None]
  - Fatigue [None]
  - Electrolyte imbalance [None]
  - Post procedural complication [None]
